FAERS Safety Report 16126125 (Version 1)
Quarter: 2019Q1

REPORT INFORMATION
  Report Type: Spontaneous
  Country: US (occurrence: US)
  Receive Date: 20190328
  Receipt Date: 20190328
  Transmission Date: 20190418
  Serious: Yes (Other)
  Sender: FDA-Public Use
  Company Number: US-TEVA-2019-US-1030015

PATIENT
  Age: 14 Year
  Sex: Male

DRUGS (2)
  1. CYCLOPHOSPHAMIDE. [Suspect]
     Active Substance: CYCLOPHOSPHAMIDE
     Indication: EMBRYONAL RHABDOMYOSARCOMA
     Dosage: RECEIVED EIGHT CYCLES OF ADJUVANT CHEMOTHERAPY
     Route: 065
  2. VINCRISTINE [Suspect]
     Active Substance: VINCRISTINE
     Indication: EMBRYONAL RHABDOMYOSARCOMA
     Dosage: RECEIVED EIGHT CYCLES OF ADJUVANT CHEMOTHERAPY
     Route: 065

REACTIONS (2)
  - Retrograde ejaculation [Recovered/Resolved]
  - Neuropathy peripheral [Recovered/Resolved]
